FAERS Safety Report 9808844 (Version 1)
Quarter: 2014Q1

REPORT INFORMATION
  Report Type: Spontaneous
  Country: US (occurrence: US)
  Receive Date: 20140110
  Receipt Date: 20140110
  Transmission Date: 20141002
  Serious: No
  Sender: FDA-Public Use
  Company Number: US-GE HEALTHCARE MEDICAL DIAGNOSTICS-OMPQ-PR-1312S-1468

PATIENT
  Age: 54 Year
  Sex: Male
  Weight: 72.64 kg

DRUGS (2)
  1. OMNIPAQUE [Suspect]
     Indication: ABDOMINAL PAIN
     Route: 042
     Dates: start: 201312, end: 201312
  2. OMNIPAQUE [Suspect]
     Indication: DIAGNOSTIC PROCEDURE

REACTIONS (1)
  - Sneezing [Unknown]
